FAERS Safety Report 5787741-9 (Version None)
Quarter: 2008Q2

REPORT INFORMATION
  Report Type: 
  Country: None (occurrence: None)
  Receive Date: 20080625
  Receipt Date: 20080617
  Transmission Date: 20081010
  Serious: Yes (Hospitalization, Other)
  Sender: FDA-Public Use
  Company Number: US-BAYER-200819178NA

PATIENT
  Age: 53 Year
  Sex: Female
  Weight: 123 kg

DRUGS (18)
  1. CAMPATH [Suspect]
     Indication: LIVER TRANSPLANT
     Dosage: TOTAL DAILY DOSE: 30 MG
     Route: 042
     Dates: start: 20050701, end: 20050701
  2. CAMPATH [Suspect]
     Dosage: TOTAL DAILY DOSE: 30 MG
     Route: 042
     Dates: start: 20050705, end: 20050705
  3. TACROLIMUS [Suspect]
     Indication: PROPHYLAXIS AGAINST TRANSPLANT REJECTION
     Dosage: TOTAL DAILY DOSE: 3 MG
     Route: 048
     Dates: start: 20071015, end: 20080107
  4. MUPIROCIN [Concomitant]
     Dates: start: 20050705
  5. HYDROCORTISONE [Concomitant]
     Dates: start: 20050705
  6. CACO3 [Concomitant]
     Dates: start: 20050706
  7. LASIX [Concomitant]
     Dates: start: 20060328
  8. NORVASC [Concomitant]
     Dates: start: 20060328
  9. TUMS [Concomitant]
  10. GLUCOPHAGE [Concomitant]
     Dates: start: 20061215
  11. NORCO [Concomitant]
     Dates: start: 20050706
  12. CLARITIN [Concomitant]
     Dates: start: 20050710
  13. VALCYTE [Concomitant]
     Dates: start: 20050712
  14. PRILOSEC [Concomitant]
     Dates: start: 20050715
  15. FLORINEF [Concomitant]
     Dates: start: 20050806
  16. METOPROLOL [Concomitant]
     Dates: start: 20050831
  17. CLOTRIMAZOLE [Concomitant]
     Dates: start: 20050701
  18. SEPTRA [Concomitant]
     Dates: start: 20050701

REACTIONS (2)
  - LIVER FUNCTION TEST ABNORMAL [None]
  - PYREXIA [None]
